FAERS Safety Report 6985576-2 (Version None)
Quarter: 2010Q3

REPORT INFORMATION
  Report Type: 
  Country: None (occurrence: None)
  Receive Date: 20100915
  Receipt Date: 20100907
  Transmission Date: 20110219
  Serious: Yes (Hospitalization)
  Sender: FDA-Public Use
  Company Number: CA-MERCK-1009USA00722

PATIENT
  Age: 63 Year
  Sex: Male
  Weight: 151 kg

DRUGS (5)
  1. SINEMET [Suspect]
     Indication: PARKINSON'S DISEASE
     Route: 048
  2. PRAMIPEXOLE [Concomitant]
     Indication: PARKINSON'S DISEASE
     Route: 048
  3. ENTACAPONE [Concomitant]
     Indication: PARKINSON'S DISEASE
     Route: 048
  4. OSMOLITE [Suspect]
     Route: 048
  5. RESOURCE DIABETIC [Suspect]
     Route: 048

REACTIONS (2)
  - DRUG INTERACTION [None]
  - NEUROLEPTIC MALIGNANT SYNDROME [None]
